FAERS Safety Report 5678826-6 (Version None)
Quarter: 2008Q1

REPORT INFORMATION
  Report Type: 
  Country: None (occurrence: None)
  Receive Date: 20080321
  Receipt Date: 20080311
  Transmission Date: 20080703
  Serious: Yes (Other)
  Sender: FDA-Public Use
  Company Number: 024859

PATIENT
  Age: 47 Year
  Sex: Female
  Weight: 62.6 kg

DRUGS (2)
  1. SEASONIQUE [Suspect]
     Indication: ORAL CONTRACEPTION
     Dosage: 1 TABLET , QD, ORAL
     Route: 048
     Dates: start: 20080101
  2. BENICAR [Concomitant]

REACTIONS (5)
  - FUNGAL INFECTION [None]
  - HAEMORRHOIDS [None]
  - LOSS OF CONSCIOUSNESS [None]
  - METRORRHAGIA [None]
  - RECTAL SPASM [None]
